FAERS Safety Report 5762415-9 (Version None)
Quarter: 2008Q2

REPORT INFORMATION
  Report Type: 
  Country: None (occurrence: None)
  Receive Date: 20080609
  Receipt Date: 20080530
  Transmission Date: 20081010
  Serious: Yes (Hospitalization)
  Sender: FDA-Public Use
  Company Number: US-AMGEN-QUU283350

PATIENT
  Sex: Male

DRUGS (21)
  1. KINERET [Suspect]
     Indication: RHEUMATOID ARTHRITIS
     Dates: start: 20020101
  2. SODIUM CITRATE [Concomitant]
  3. LEXAPRO [Concomitant]
  4. TOPROL-XL [Concomitant]
  5. HYDROCHLOROTHIAZIDE [Concomitant]
  6. VYTORIN [Concomitant]
  7. PROTONIX [Concomitant]
  8. CLONIDINE [Concomitant]
  9. FOLIC ACID [Concomitant]
  10. XANAX [Concomitant]
  11. AMBIEN [Concomitant]
  12. DARVOCET-N [Concomitant]
  13. HECTORAL [Concomitant]
  14. FOSINOPRIL SODIUM [Concomitant]
  15. PRIMIDONE [Concomitant]
  16. TOPAMAX [Concomitant]
  17. FLUOROURACIL [Concomitant]
  18. EPIRUBICIN [Concomitant]
  19. CYCLOPHOSPHAMIDE [Concomitant]
  20. PACLITAXEL [Concomitant]
  21. SALSALATE [Concomitant]

REACTIONS (2)
  - CEREBROVASCULAR ACCIDENT [None]
  - PAIN [None]
